FAERS Safety Report 4376360-7 (Version None)
Quarter: 2004Q2

REPORT INFORMATION
  Report Type: 
  Country: None (occurrence: None)
  Receive Date: 20040612
  Receipt Date: 20040602
  Transmission Date: 20050107
  Serious: Yes (Other)
  Sender: FDA-Public Use
  Company Number: NSADSS2001035880

PATIENT
  Age: 69 Year
  Sex: Female

DRUGS (7)
  1. REMICADE [Suspect]
     Route: 041
  2. REMICADE [Suspect]
     Indication: RHEUMATOID ARTHRITIS
     Dosage: 13.5 MONTHS
     Route: 041
  3. METHOTREXATE [Concomitant]
     Route: 049
  4. VIOXX [Concomitant]
     Route: 049
  5. PREMARIN [Concomitant]
  6. FOLIC ACID [Concomitant]
  7. ACETAMINOPHEN [Concomitant]
     Dosage: EVERY 8 HOURS

REACTIONS (2)
  - DISEASE RECURRENCE [None]
  - MALIGNANT MELANOMA [None]
